FAERS Safety Report 13753955 (Version 3)
Quarter: 2017Q4

REPORT INFORMATION
  Report Type: Report from Study
  Country: CA (occurrence: CA)
  Receive Date: 20170714
  Receipt Date: 20171124
  Transmission Date: 20180320
  Serious: Yes (Hospitalization, Other)
  Sender: FDA-Public Use
  Company Number: CA-BRISTOL-MYERS SQUIBB COMPANY-BMS-2017-000796

PATIENT
  Age: 62 Year
  Sex: Female

DRUGS (4)
  1. CORTISONE [Concomitant]
     Active Substance: CORTISONE\HYDROCORTISONE
     Indication: PRODUCT USED FOR UNKNOWN INDICATION
     Route: 065
  2. EMTEC [Concomitant]
     Indication: PRODUCT USED FOR UNKNOWN INDICATION
     Route: 065
  3. ABATACEPT [Suspect]
     Active Substance: ABATACEPT
     Indication: RHEUMATOID ARTHRITIS
     Dosage: 750 MG, Q4WK
     Route: 042
     Dates: start: 20151113
  4. ASA [Concomitant]
     Active Substance: ASPIRIN
     Indication: PRODUCT USED FOR UNKNOWN INDICATION
     Dosage: UNK
     Route: 065

REACTIONS (14)
  - Arthritis [Unknown]
  - Tooth disorder [Unknown]
  - Cerebrovascular accident [Unknown]
  - Alopecia [Recovering/Resolving]
  - Erythema [Not Recovered/Not Resolved]
  - Sensitivity of teeth [Unknown]
  - Arthralgia [Unknown]
  - Inflammation [Not Recovered/Not Resolved]
  - Peripheral swelling [Not Recovered/Not Resolved]
  - Gingival pain [Not Recovered/Not Resolved]
  - Dental caries [Unknown]
  - Headache [Unknown]
  - Dry mouth [Unknown]
  - Coagulopathy [Unknown]

NARRATIVE: CASE EVENT DATE: 201703
